FAERS Safety Report 12039296 (Version 1)
Quarter: 2016Q1

REPORT INFORMATION
  Report Type: Spontaneous
  Country: US (occurrence: None)
  Receive Date: 20160205
  Receipt Date: 20160205
  Transmission Date: 20160526
  Serious: No
  Sender: FDA-Public Use
  Company Number: None

PATIENT
  Age: 50 Year
  Sex: Male
  Weight: 90.72 kg

DRUGS (1)
  1. CEFDINIR. [Suspect]
     Active Substance: CEFDINIR
     Indication: SINUSITIS
     Route: 048
     Dates: start: 20160129, end: 20160202

REACTIONS (1)
  - Hiccups [None]

NARRATIVE: CASE EVENT DATE: 20160129
